FAERS Safety Report 8922534 (Version 1)
Quarter: 2012Q4

REPORT INFORMATION
  Report Type: 
  Country: SE (occurrence: SE)
  Receive Date: 20121123
  Receipt Date: 20121123
  Transmission Date: 20130627
  Serious: Yes (Hospitalization)
  Sender: FDA-Public Use
  Company Number: SE-PFIZER INC-2012290178

PATIENT
  Age: 64 Year
  Sex: Female
  Weight: 75 kg

DRUGS (12)
  1. GENOTROPIN [Suspect]
     Indication: GROWTH HORMONE DEFICIENCY
     Dosage: 0.53 mg, 1x/day, 7 injections/week
     Route: 058
     Dates: start: 19990510
  2. CIPRAMIL [Concomitant]
     Indication: DEPRESSIVE DISORDER
     Dosage: UNK
     Dates: start: 19971113
  3. KLIOGEST ^NOVO INDUSTRI^ [Concomitant]
     Indication: LUTEINIZING HORMONE DEFICIENCY
     Dosage: UNK
     Dates: start: 19960501
  4. KLIOGEST ^NOVO INDUSTRI^ [Concomitant]
     Indication: FOLLICLE-STIMULATING HORMONE DEFICIENCY
  5. DOXYFERM [Concomitant]
     Indication: ACUTE BRONCHITIS
     Dosage: UNK
     Dates: start: 19971030
  6. DOXYFERM [Concomitant]
     Indication: BRONCHIOLITIS
  7. ALGANEX [Concomitant]
     Indication: ARTERIAL DISORDER
     Dosage: UNK
     Dates: start: 19980410
  8. BETNOVAT [Concomitant]
     Indication: ECZEMA
     Dosage: UNK
     Dates: start: 20000510
  9. BRICANYL [Concomitant]
     Indication: ASTHMA
     Dosage: UNK
     Dates: start: 20000510
  10. PROPAVAN [Concomitant]
     Indication: SLEEP DISORDER
     Dosage: UNK
     Dates: start: 19990510
  11. TRAMADOL HYDROCHLORIDE [Concomitant]
     Indication: PAIN
     Dosage: UNK
     Dates: start: 20000510
  12. LEVOTHYROXINE [Concomitant]
     Indication: TSH DECREASED
     Dosage: UNK
     Dates: start: 19930101

REACTIONS (1)
  - Osteoarthritis [Unknown]
